FAERS Safety Report 15209376 (Version 1)
Quarter: 2018Q3

REPORT INFORMATION
  Report Type: Spontaneous
  Country: US (occurrence: US)
  Receive Date: 20180727
  Receipt Date: 20180727
  Transmission Date: 20181010
  Serious: Yes (Other)
  Sender: FDA-Public Use
  Company Number: US-ENDO PHARMACEUTICALS INC-2018-016334

PATIENT
  Sex: Female

DRUGS (7)
  1. FAMOTIDINE. [Concomitant]
     Active Substance: FAMOTIDINE
     Indication: GASTROOESOPHAGEAL REFLUX DISEASE
     Dosage: 1 DF, OD
     Route: 048
  2. METHOTREXATE. [Concomitant]
     Active Substance: METHOTREXATE
     Indication: RHEUMATOID ARTHRITIS
     Dosage: 0.4 ML, WEEKLY
     Route: 058
     Dates: start: 2006
  3. CYMBALTA [Concomitant]
     Active Substance: DULOXETINE HYDROCHLORIDE
     Indication: PAIN
     Dosage: 1 DF, OD
     Route: 048
     Dates: start: 20161212
  4. PANTOPRAZOLE SODIUM. [Concomitant]
     Active Substance: PANTOPRAZOLE SODIUM
     Indication: GASTRIC ULCER HAEMORRHAGE
     Dosage: 1 DF, DAILY
     Route: 048
     Dates: start: 2013
  5. WELLBUTRIN [Concomitant]
     Active Substance: BUPROPION HYDROCHLORIDE
     Indication: DEPRESSION
     Dosage: 1 DF, DAILY
     Route: 048
     Dates: start: 2002
  6. IRON SUPPLEMENT [Concomitant]
     Active Substance: IRON
     Indication: ANAEMIA
     Dosage: UNK UNK, UNKNOWN
     Route: 065
     Dates: start: 201705
  7. PREDNISONE TABLETS 5MG [Suspect]
     Active Substance: PREDNISONE
     Indication: RHEUMATOID ARTHRITIS
     Dosage: 2.5 MG, DAILY
     Route: 065
     Dates: start: 2006

REACTIONS (3)
  - Cataract [Unknown]
  - Wrong technique in product usage process [Unknown]
  - Diabetes mellitus [Unknown]
